FAERS Safety Report 8945391 (Version 1)
Quarter: 2012Q4

REPORT INFORMATION
  Report Type: 
  Country: FR (occurrence: FR)
  Receive Date: 20121205
  Receipt Date: 20121205
  Transmission Date: 20130627
  Serious: Yes (Hospitalization, Other)
  Sender: FDA-Public Use
  Company Number: FR-PFIZER INC-2012299931

PATIENT
  Age: 76 Year
  Sex: Male

DRUGS (5)
  1. SUTENT [Suspect]
     Dosage: 37.5 mg, 1x/day
     Route: 048
     Dates: start: 201204, end: 20120920
  2. CORTANCYL [Concomitant]
     Dosage: UNK
  3. CRESTOR [Concomitant]
     Dosage: UNK
  4. PERMIXON [Concomitant]
     Dosage: UNK
  5. ALPRESS [Concomitant]
     Dosage: UNK

REACTIONS (4)
  - Confusional state [Recovering/Resolving]
  - Hepatocellular injury [Recovering/Resolving]
  - General physical health deterioration [Recovering/Resolving]
  - Back pain [Recovering/Resolving]
